FAERS Safety Report 9277975 (Version 1)
Quarter: 2013Q2

REPORT INFORMATION
  Report Type: Spontaneous
  Country: SE (occurrence: SE)
  Receive Date: 20130508
  Receipt Date: 20130508
  Transmission Date: 20140414
  Serious: Yes (Death)
  Sender: FDA-Public Use
  Company Number: SE-ROCHE-1221882

PATIENT
  Age: 87 Year
  Sex: Female

DRUGS (1)
  1. ACTILYSE [Suspect]
     Indication: ISCHAEMIC STROKE
     Dosage: DAILY DOSE: 39 ML MIXED WITH 250 ML NACL
     Route: 065
     Dates: start: 20130426, end: 20130426

REACTIONS (7)
  - Cerebral haemorrhage [Fatal]
  - Convulsion [Fatal]
  - Anxiety [Fatal]
  - Pupillary reflex impaired [Fatal]
  - Mouth haemorrhage [Fatal]
  - Dyspnoea [Fatal]
  - Enuresis [Fatal]
